FAERS Safety Report 5255972-2 (Version None)
Quarter: 2007Q1

REPORT INFORMATION
  Report Type: 
  Country: None (occurrence: None)
  Receive Date: 20070302
  Receipt Date: 20070302
  Transmission Date: 20070707
  Serious: Yes (Hospitalization)
  Sender: FDA-Public Use
  Company Number: None

PATIENT
  Age: 64 Year
  Sex: Female
  Weight: 80 kg

DRUGS (1)
  1. VIVAGLOBIN [Suspect]
     Indication: HYPERGAMMAGLOBULINAEMIA
     Dosage: 9.6 GM (60ML)  WEEKLY  SQ
     Dates: start: 20070227

REACTIONS (2)
  - INFUSION RELATED REACTION [None]
  - VOMITING [None]
